FAERS Safety Report 20803990 (Version 11)
Quarter: 2022Q4

REPORT INFORMATION
  Report Type: Report from Study
  Country: US (occurrence: US)
  Receive Date: 20220509
  Receipt Date: 20221007
  Transmission Date: 20230113
  Serious: Yes (Life-Threatening, Hospitalization, Other)
  Sender: FDA-Public Use
  Company Number: NVSC2022US106431

PATIENT
  Sex: Female

DRUGS (4)
  1. PIQRAY [Suspect]
     Active Substance: ALPELISIB
     Indication: Breast cancer
     Dosage: 250 MG
     Route: 048
  2. PIQRAY [Suspect]
     Active Substance: ALPELISIB
     Dosage: 250 MG, QD
     Route: 048
     Dates: start: 20220421, end: 20220808
  3. PIQRAY [Suspect]
     Active Substance: ALPELISIB
     Dosage: 300 MG, QD
     Route: 048
  4. PIQRAY [Suspect]
     Active Substance: ALPELISIB
     Route: 048

REACTIONS (17)
  - Malnutrition [Unknown]
  - Dehydration [Unknown]
  - Renal impairment [Unknown]
  - Bone cancer [Unknown]
  - Second primary malignancy [Unknown]
  - Feeding disorder [Unknown]
  - Taste disorder [Unknown]
  - Paraesthesia [Unknown]
  - Muscular weakness [Unknown]
  - Diplopia [Unknown]
  - Weight decreased [Unknown]
  - Peripheral swelling [Unknown]
  - Diarrhoea [Unknown]
  - Stomatitis [Unknown]
  - Alopecia [Unknown]
  - Product dose omission issue [Unknown]
  - Memory impairment [Unknown]
